FAERS Safety Report 18039221 (Version 1)
Quarter: 2020Q3

REPORT INFORMATION
  Report Type: Spontaneous
  Country: FR (occurrence: FR)
  Receive Date: 20200718
  Receipt Date: 20200718
  Transmission Date: 20201103
  Serious: Yes (Other)
  Sender: FDA-Public Use
  Company Number: FR-CADILA HEALTHCARE LIMITED-FR-ZYDUS-029568

PATIENT

DRUGS (9)
  1. NAROPEINE [Concomitant]
     Active Substance: ROPIVACAINE HYDROCHLORIDE
     Dosage: ()
  2. LYRICA [Concomitant]
     Active Substance: PREGABALIN
     Dosage: ()
  3. VENLAFAXINE [Suspect]
     Active Substance: VENLAFAXINE HYDROCHLORIDE
     Indication: PRODUCT USED FOR UNKNOWN INDICATION
     Route: 048
     Dates: start: 2018
  4. NAROPEINE [Concomitant]
     Active Substance: ROPIVACAINE HYDROCHLORIDE
  5. KETOPROFENE [Concomitant]
     Active Substance: KETOPROFEN
  6. BIPROFENID [Concomitant]
     Active Substance: KETOPROFEN
     Dosage: ()
  7. DEXAMETHASON [Concomitant]
     Active Substance: DEXAMETHASONE
  8. LYRICA [Concomitant]
     Active Substance: PREGABALIN
  9. DEXAMETHASONE. [Concomitant]
     Active Substance: DEXAMETHASONE
     Dosage: ()

REACTIONS (2)
  - Electrocardiogram abnormal [Recovered/Resolved]
  - Hypokalaemia [Recovered/Resolved]

NARRATIVE: CASE EVENT DATE: 2018
